FAERS Safety Report 5156383-0 (Version None)
Quarter: 2006Q4

REPORT INFORMATION
  Report Type: 
  Country: None (occurrence: None)
  Receive Date: 20061122
  Receipt Date: 20061018
  Transmission Date: 20070319
  Serious: Yes (Hospitalization)
  Sender: FDA-Public Use
  Company Number: US-BRISTOL-MYERS SQUIBB COMPANY-13545710

PATIENT
  Age: 60 Year
  Sex: Female

DRUGS (6)
  1. BARACLUDE [Suspect]
     Indication: HEPATITIS B
     Dosage: THERAPY INTERRUPTED ON 16-APR-2006 RESTARTED ON AN UNSPECIFIED DATE AND CONTINUED
     Route: 048
     Dates: start: 20060201, end: 20061102
  2. PROCARDIA [Concomitant]
  3. DYAZIDE [Concomitant]
  4. ESTAZOLAM [Concomitant]
  5. PROZAC [Concomitant]
  6. VITAMIN E [Concomitant]

REACTIONS (1)
  - DIABETIC KETOACIDOSIS [None]
